FAERS Safety Report 6866598-9 (Version None)
Quarter: 2010Q2

REPORT INFORMATION
  Report Type: 
  Country: None (occurrence: None)
  Receive Date: 20100610
  Receipt Date: 20100401
  Transmission Date: 20101027
  Serious: No
  Sender: FDA-Public Use
  Company Number: 2010SP019700

PATIENT
  Age: 79 Year
  Sex: Female

DRUGS (1)
  1. SAPHRIS [Suspect]
     Indication: BIPOLAR DISORDER
     Dosage: 10 MG;BID;SL
     Route: 060
     Dates: start: 20100101

REACTIONS (2)
  - MOUTH ULCERATION [None]
  - SALIVARY HYPERSECRETION [None]
